FAERS Safety Report 9394594 (Version 1)
Quarter: 2013Q3

REPORT INFORMATION
  Report Type: Spontaneous
  Country: US (occurrence: US)
  Receive Date: 20130711
  Receipt Date: 20130711
  Transmission Date: 20140515
  Serious: No
  Sender: FDA-Public Use
  Company Number: US-BAYER-2013-084312

PATIENT
  Age: 79 Year
  Sex: Female
  Weight: 77 kg

DRUGS (4)
  1. ALEVE TABLET [Suspect]
     Indication: PAIN
     Dosage: 2 DF, OTHER FREQUENCY
     Route: 048
     Dates: start: 20130625, end: 20130626
  2. ATENOLOL [Concomitant]
  3. LAMICTAL [Concomitant]
  4. VITAMIN D [Concomitant]

REACTIONS (2)
  - Drug ineffective [None]
  - Extra dose administered [None]
